FAERS Safety Report 5236050-5 (Version None)
Quarter: 2007Q1

REPORT INFORMATION
  Report Type: 
  Country: None (occurrence: None)
  Receive Date: 20070212
  Receipt Date: 20070131
  Transmission Date: 20070707
  Serious: Yes (Death, Hospitalization, Other)
  Sender: FDA-Public Use
  Company Number: DE-ELI_LILLY_AND_COMPANY-DE_050115081

PATIENT
  Age: 66 Year
  Sex: Female

DRUGS (5)
  1. FORTEO [Suspect]
     Indication: OSTEOPOROSIS
     Dosage: 20 UG, UNKNOWN
     Route: 058
     Dates: start: 20040101, end: 20070101
  2. L-DOPA [Concomitant]
     Dosage: UNK, UNKNOWN
  3. CATECHOL-O-METHYL TRANSFERASE BLOCKER [Concomitant]
     Dosage: UNK, UNKNOWN
  4. AMANTADINE HCL [Concomitant]
     Dosage: UNK, UNKNOWN
  5. REQUIP [Concomitant]
     Indication: PARKINSON'S DISEASE
     Dosage: UNK, UNKNOWN
     Route: 048

REACTIONS (3)
  - CONDITION AGGRAVATED [None]
  - LARYNGITIS [None]
  - STRIDOR [None]
